FAERS Safety Report 5005981-3 (Version None)
Quarter: 2006Q2

REPORT INFORMATION
  Report Type: 
  Country: None (occurrence: None)
  Receive Date: 20060516
  Receipt Date: 20060501
  Transmission Date: 20061013
  Serious: Yes (Other)
  Sender: FDA-Public Use
  Company Number: 2006BH009187

PATIENT
  Age: 41 Year
  Sex: Female

DRUGS (1)
  1. TOBRAMYCIN [Suspect]
     Indication: PSEUDOMONAS INFECTION
     Dosage: 300 MG; 2X A DAY; INH
     Route: 055
     Dates: start: 19990512

REACTIONS (8)
  - COORDINATION ABNORMAL [None]
  - DEAFNESS [None]
  - DIZZINESS [None]
  - DRUG TOXICITY [None]
  - NYSTAGMUS [None]
  - OSCILLOPSIA [None]
  - RENAL IMPAIRMENT [None]
  - VESTIBULAR DISORDER [None]
